FAERS Safety Report 5049534-X (Version None)
Quarter: 2006Q3

REPORT INFORMATION
  Report Type: 
  Country: None (occurrence: None)
  Receive Date: 20060706
  Receipt Date: 20060621
  Transmission Date: 20061208
  Serious: Yes (Hospitalization)
  Sender: FDA-Public Use
  Company Number: 2006RI-02761

PATIENT
  Sex: Female

DRUGS (1)
  1. AMOXICILLIN-CLAVULANATE POTASSIUM  (CLAVULANIC ACID, AMOXICILLIN TRIHY [Suspect]
     Dosage: ORAL
     Route: 048

REACTIONS (1)
  - LOSS OF CONSCIOUSNESS [None]
